FAERS Safety Report 10102098 (Version 1)
Quarter: 2014Q2

REPORT INFORMATION
  Report Type: Spontaneous
  Country: IT (occurrence: IT)
  Receive Date: 20140424
  Receipt Date: 20140424
  Transmission Date: 20141212
  Serious: Yes (Hospitalization)
  Sender: FDA-Public Use
  Company Number: IT-WATSON-2014-08312

PATIENT
  Age: 21 Year
  Sex: Female

DRUGS (8)
  1. PLASIL                             /00041901/ [Suspect]
     Indication: POISONING DELIBERATE
     Dosage: 20 MG, DAILY
     Route: 048
     Dates: start: 20140219, end: 20140219
  2. CO EFFERALGAN [Suspect]
     Indication: POISONING DELIBERATE
     Dosage: 4000 MG, DAILY
     Route: 065
     Dates: start: 20140219, end: 20140219
  3. TRIMETON /00072502/ [Suspect]
     Indication: POISONING DELIBERATE
     Dosage: 40 MG, DAILY
     Route: 048
     Dates: start: 20140219, end: 20140219
  4. RAMIPRIL ACTAVIS [Suspect]
     Indication: POISONING DELIBERATE
     Dosage: 20 MG, DAILY
     Route: 048
     Dates: start: 20140219, end: 20140219
  5. METFORMIN (UNKNOWN) [Suspect]
     Indication: POISONING DELIBERATE
     Dosage: 2500 MG, DAILY
     Route: 048
     Dates: start: 20140219, end: 20140219
  6. METRONIDAZOLE (UNKNOWN) [Suspect]
     Indication: POISONING DELIBERATE
     Dosage: 2500 MG, DAILY
     Route: 048
     Dates: start: 20140219, end: 20140219
  7. DICLOFENAC SANDOZ                  /00372302/ [Suspect]
     Indication: POISONING DELIBERATE
     Dosage: 500 MG, DAILY
     Route: 046
     Dates: start: 20140219, end: 20140219
  8. SIMVASTATINA ABC [Suspect]
     Indication: POISONING DELIBERATE
     Dosage: 560 MG, DAILY
     Route: 048
     Dates: start: 20140219, end: 20140219

REACTIONS (7)
  - Loss of consciousness [Recovered/Resolved]
  - Drug abuse [Recovered/Resolved]
  - Abdominal tenderness [Recovered/Resolved]
  - Insomnia [Recovered/Resolved]
  - Decreased appetite [Recovered/Resolved]
  - Dysphoria [Recovered/Resolved]
  - Poisoning deliberate [Recovered/Resolved]
